FAERS Safety Report 7522400-3 (Version None)
Quarter: 2011Q2

REPORT INFORMATION
  Report Type: 
  Country: None (occurrence: None)
  Receive Date: 20110525
  Receipt Date: 20110502
  Transmission Date: 20111010
  Serious: Yes (Other)
  Sender: FDA-Public Use
  Company Number: 54973 AE # 456

PATIENT
  Age: 59 Year
  Sex: Female

DRUGS (7)
  1. HYLAND'S CALMS FORTE [Suspect]
     Indication: STRESS
     Dosage: 1 TAB QHS X 6 MONTHS
  2. NEURONTIN [Concomitant]
  3. LAMICTAL [Concomitant]
  4. HYLAND'S INSOMNIA [Suspect]
     Indication: INSOMNIA
     Dosage: 1 TAB QHS X  6 MONTHS
  5. AMBIEN [Concomitant]
  6. 5 HTP [Concomitant]
  7. MELATONIN [Concomitant]

REACTIONS (1)
  - VENTRICULAR EXTRASYSTOLES [None]
